FAERS Safety Report 4760300-2 (Version None)
Quarter: 2005Q3

REPORT INFORMATION
  Report Type: 
  Country: None (occurrence: None)
  Receive Date: 20050831
  Receipt Date: 20050819
  Transmission Date: 20060218
  Serious: Yes (Life-Threatening, Hospitalization, Other)
  Sender: FDA-Public Use
  Company Number: 12137

PATIENT
  Age: 24 Month

DRUGS (11)
  1. MORPHINE [Suspect]
     Indication: POSTOPERATIVE ANALGESIA
     Dosage: 10 MCG/KG IV
     Route: 042
     Dates: start: 20050810, end: 20050811
  2. MORPHINE [Suspect]
     Indication: POSTOPERATIVE ANALGESIA
     Dosage: 20 MCG/KG IV
     Route: 042
     Dates: start: 20050810, end: 20050811
  3. NIFEDIPINE [Concomitant]
  4. CEFOTAXIME [Concomitant]
  5. METRONIDAZOLE [Concomitant]
  6. GENTAMICIN [Concomitant]
  7. THIOPENTONE [Concomitant]
  8. ATRACURIUM BESYLATE [Concomitant]
  9. PROPRANOLOL [Concomitant]
  10. CEPHALEXIN [Concomitant]
  11. REMIFENTANIL [Concomitant]

REACTIONS (6)
  - CHILLS [None]
  - HYPERPYREXIA [None]
  - PAIN [None]
  - SWELLING FACE [None]
  - SWOLLEN TONGUE [None]
  - THERAPY NON-RESPONDER [None]
